FAERS Safety Report 5134695-4 (Version None)
Quarter: 2006Q4

REPORT INFORMATION
  Report Type: 
  Country: None (occurrence: None)
  Receive Date: 20061019
  Receipt Date: 20061009
  Transmission Date: 20070319
  Serious: Yes (Other)
  Sender: FDA-Public Use
  Company Number: 2006124506

PATIENT
  Sex: Male
  Weight: 83.9154 kg

DRUGS (5)
  1. LIPITOR [Suspect]
     Indication: BLOOD CHOLESTEROL INCREASED
     Dosage: 20 MG (20 MG, 1 IN 1 D);
  2. ALLOPURINOL [Concomitant]
  3. SEROQUEL [Concomitant]
  4. XALATAN [Concomitant]
  5. LEXAPRO [Concomitant]

REACTIONS (4)
  - ANGIOPLASTY [None]
  - MOBILITY DECREASED [None]
  - MUSCLE SPASMS [None]
  - TREATMENT NONCOMPLIANCE [None]
